FAERS Safety Report 7468238-7 (Version None)
Quarter: 2011Q2

REPORT INFORMATION
  Report Type: 
  Country: None (occurrence: None)
  Receive Date: 20110509
  Receipt Date: 20110509
  Transmission Date: 20111010
  Serious: Yes (Hospitalization, Disabling, Other)
  Sender: FDA-Public Use
  Company Number: FR-ABBOTT-11P-056-0701873-00

PATIENT
  Sex: Male
  Weight: 79 kg

DRUGS (6)
  1. HUMIRA [Suspect]
  2. KETOPROFEN [Concomitant]
     Indication: PAIN
     Route: 048
     Dates: start: 20050101
  3. METHOTREXATE [Suspect]
     Indication: PSORIASIS
     Route: 048
     Dates: start: 20060301, end: 20101201
  4. SPECIAFOLDINE [Concomitant]
     Indication: PRODUCT USED FOR UNKNOWN INDICATION
     Route: 048
     Dates: start: 20060301, end: 20101201
  5. HUMIRA [Suspect]
     Indication: PSORIATIC ARTHROPATHY
     Route: 058
     Dates: start: 20080201, end: 20101223
  6. METHOTREXATE [Suspect]
     Dates: start: 20050101, end: 20051201

REACTIONS (3)
  - PSORIASIS [None]
  - DEAFNESS BILATERAL [None]
  - DIZZINESS [None]
